FAERS Safety Report 8839336 (Version 1)
Quarter: 2012Q4

REPORT INFORMATION
  Report Type: Spontaneous
  Country: US (occurrence: None)
  Receive Date: 20121012
  Receipt Date: 20121012
  Transmission Date: 20130627
  Serious: Yes (Disabling, Other)
  Sender: FDA-Public Use
  Company Number: None

PATIENT
  Age: 44 Year
  Sex: Female
  Weight: 54 kg

DRUGS (2)
  1. ESCITALOPRAM [Suspect]
     Dosage: escitalopram 100mg t 1/2 tablets p.o. qam
     Route: 048
     Dates: start: 20120209
  2. ESCITALOPRAM [Suspect]
     Dosage: escitalopram 10mg tablet po qam
     Route: 048
     Dates: start: 20120607

REACTIONS (6)
  - Depression [None]
  - Product substitution issue [None]
  - Anxiety [None]
  - Activities of daily living impaired [None]
  - Impaired self-care [None]
  - Pain [None]
